FAERS Safety Report 7529448-3 (Version None)
Quarter: 2011Q2

REPORT INFORMATION
  Report Type: 
  Country: None (occurrence: None)
  Receive Date: 20110520
  Receipt Date: 20110301
  Transmission Date: 20111010
  Serious: No
  Sender: FDA-Public Use
  Company Number: 028466

PATIENT
  Sex: Female

DRUGS (3)
  1. LACOSAMIDE [Suspect]
     Dosage: (200 MG QD)
     Dates: start: 20110201, end: 20110201
  2. LACOSAMIDE [Suspect]
     Dosage: (200 MG QD)
     Dates: start: 20110101
  3. TOPAMAX [Concomitant]

REACTIONS (2)
  - BURNING SENSATION [None]
  - HYPOAESTHESIA ORAL [None]
